FAERS Safety Report 12109185 (Version 1)
Quarter: 2016Q1

REPORT INFORMATION
  Report Type: Spontaneous
  Country: US (occurrence: None)
  Receive Date: 20160222
  Receipt Date: 20160222
  Transmission Date: 20160526
  Serious: No
  Sender: FDA-Public Use
  Company Number: None

PATIENT
  Age: 30 Year
  Sex: Female
  Weight: 56.7 kg

DRUGS (2)
  1. IC FLUCONAZOLE 150MG [Suspect]
     Active Substance: FLUCONAZOLE
     Indication: FUNGAL INFECTION
     Dosage: 1 DAY/REPEAT 1WK
     Dates: start: 20160121, end: 20160121
  2. FLINTSTONE GUMMIES [Concomitant]

REACTIONS (5)
  - Abdominal pain upper [None]
  - Headache [None]
  - Decreased appetite [None]
  - Diarrhoea [None]
  - Dizziness [None]

NARRATIVE: CASE EVENT DATE: 20160122
